FAERS Safety Report 23105047 (Version 1)
Quarter: 2023Q4

REPORT INFORMATION
  Report Type: Report from Study
  Country: US (occurrence: US)
  Receive Date: 20231025
  Receipt Date: 20231025
  Transmission Date: 20240110
  Serious: Yes (Other)
  Sender: FDA-Public Use
  Company Number: US-002147023-NVSC2023US227139

PATIENT
  Sex: Male

DRUGS (1)
  1. COSENTYX [Suspect]
     Active Substance: SECUKINUMAB
     Indication: Psoriasis
     Dosage: UNK
     Route: 065

REACTIONS (10)
  - Psoriatic arthropathy [Unknown]
  - Pruritus [Unknown]
  - Arthralgia [Unknown]
  - Back pain [Unknown]
  - Rash [Unknown]
  - Myxoid cyst [Unknown]
  - Psoriasis [Unknown]
  - Actinic keratosis [Unknown]
  - Neoplasm skin [Unknown]
  - Drug ineffective [Unknown]
